FAERS Safety Report 8497717 (Version 2)
Quarter: 2014Q4

REPORT INFORMATION
  Report Type: Spontaneous
  Country: US (occurrence: None)
  Receive Date: 20120402
  Receipt Date: 20141128
  Transmission Date: 20150529
  Serious: Yes (Hospitalization)
  Sender: FDA-Public Use
  Company Number: AMAG201202980

PATIENT
  Age: 50 Year
  Sex: Female
  Weight: 54.9 kg

DRUGS (4)
  1. FERAHEME [Suspect]
     Active Substance: FERUMOXYTOL NON-STOICHIOMETRIC MAGNETITE
     Indication: IRON DEFICIENCY ANAEMIA
     Dosage: UNK
     Route: 042
     Dates: start: 201111, end: 201111
  2. CORTICOSTEROIDS [Concomitant]
     Active Substance: CORTICOSTEROID NOS
  3. IRON (IRON) [Concomitant]
     Active Substance: IRON
  4. VITAMIN B12 (HYDROXOCOBALAMIN) [Concomitant]

REACTIONS (6)
  - Tremor [None]
  - Hypotension [None]
  - Swollen tongue [None]
  - Seizure [None]
  - Headache [None]
  - Dyspnoea [None]

NARRATIVE: CASE EVENT DATE: 201111
